FAERS Safety Report 20445391 (Version 1)
Quarter: 2022Q1

REPORT INFORMATION
  Report Type: Spontaneous
  Country: US (occurrence: US)
  Receive Date: 20220208
  Receipt Date: 20220208
  Transmission Date: 20220423
  Serious: Yes (Death)
  Sender: FDA-Public Use
  Company Number: US-PERRIGO-22US001723

PATIENT
  Age: 56 Year
  Sex: Male

DRUGS (5)
  1. NAPROXEN SODIUM [Suspect]
     Active Substance: NAPROXEN SODIUM
     Indication: Completed suicide
     Dosage: UNKNOWN, UNKNOWN
     Route: 048
  2. UNSPECIFIED INGREDIENT [Suspect]
     Active Substance: UNSPECIFIED INGREDIENT
     Indication: Completed suicide
     Dosage: UNKNOWN, UNKNOWN
     Route: 048
  3. ETHYLENE GLYCOL [Suspect]
     Active Substance: ETHYLENE GLYCOL
     Indication: Completed suicide
     Dosage: UNKNOWN, UNKNOWN
     Route: 048
  4. MELATONIN [Suspect]
     Active Substance: MELATONIN
     Indication: Completed suicide
     Dosage: UNKNOWN, UNKNOWN
     Route: 048
  5. QUETIAPINE [Suspect]
     Active Substance: QUETIAPINE
     Indication: Completed suicide
     Dosage: UNKNOWN, UNKNOWN
     Route: 048

REACTIONS (1)
  - Exposure to toxic agent [Fatal]

NARRATIVE: CASE EVENT DATE: 20200101
